FAERS Safety Report 13099462 (Version 2)
Quarter: 2018Q1

REPORT INFORMATION
  Report Type: Spontaneous
  Country: BR (occurrence: BR)
  Receive Date: 20170109
  Receipt Date: 20180208
  Transmission Date: 20180508
  Serious: No
  Sender: FDA-Public Use
  Company Number: BR-AMGEN-BRASP2017002504

PATIENT
  Age: 14 Year
  Sex: Male

DRUGS (1)
  1. ENBREL [Suspect]
     Active Substance: ETANERCEPT
     Indication: PRODUCT USED FOR UNKNOWN INDICATION
     Dosage: 0.7 MG, WEEKLY
     Route: 065
     Dates: start: 201611

REACTIONS (2)
  - Joint stiffness [Unknown]
  - Drug dose omission [Unknown]
